FAERS Safety Report 9168404 (Version 1)
Quarter: 2013Q1

REPORT INFORMATION
  Report Type: Spontaneous
  Country: US (occurrence: US)
  Receive Date: 20130318
  Receipt Date: 20130318
  Transmission Date: 20140127
  Serious: No
  Sender: FDA-Public Use
  Company Number: US-009507513-1302USA013295

PATIENT
  Sex: Female

DRUGS (16)
  1. ZOCOR [Suspect]
     Indication: BLOOD CHOLESTEROL INCREASED
     Dosage: UNK
  2. ADVAIR [Concomitant]
     Dosage: UNK, PRN
  3. AMBIEN [Concomitant]
     Dosage: 10 MG, PRN
  4. FLEXERIL [Concomitant]
     Dosage: 10 MG, TID
  5. SYNTHROID [Concomitant]
     Indication: HYPOTHYROIDISM
     Dosage: 100 MICROGRAM, QD
  6. LYRICA [Concomitant]
     Indication: FIBROMYALGIA
     Dosage: 75 MG, TID
     Route: 048
  7. PROVENTIL [Concomitant]
     Dosage: 90 MICROGRAM, PRN
  8. SINGULAIR [Concomitant]
     Dosage: 10 MG, QD
  9. TRAMADOL HYDROCHLORIDE [Concomitant]
     Dosage: 50 MG, PRN
  10. CYANOCOBALAMIN [Concomitant]
     Dosage: 500 MICROGRAM, QW
  11. VITAMIN B (UNSPECIFIED) [Concomitant]
     Dosage: 100 MG, QD
  12. BIOTIN [Concomitant]
     Dosage: 7500 MICROGRAM, QD
  13. CALCIUM D (CALCIUM CARBONATE (+) CALCIUM CITRATE (+) CHOLECALCIFEROL) [Concomitant]
     Dosage: 1200 MG + D 1000 IU, QD
  14. VITAMIN SOURCE GLUCOSAMINE CHONDROITIN MSM [Concomitant]
     Dosage: 2 DF, QPM, TRIPLE STRENGTH (GUCOSAMINE 1500MG + CHONDROITIN 1700 MG
  15. VITAMINS (UNSPECIFIED) [Concomitant]
     Dosage: UNK, QAM
  16. SHARK CARTILAGE [Concomitant]
     Dosage: 2 DF, TID

REACTIONS (1)
  - Local swelling [Unknown]
